FAERS Safety Report 10433413 (Version 1)
Quarter: 2014Q3

REPORT INFORMATION
  Report Type: Spontaneous
  Country: US (occurrence: US)
  Receive Date: 20140905
  Receipt Date: 20140905
  Transmission Date: 20150326
  Serious: Yes (Other)
  Sender: FDA-Public Use
  Company Number: US-BAYER-2014-132871

PATIENT
  Age: 35 Year
  Sex: Male

DRUGS (1)
  1. MAGNEVIST [Suspect]
     Active Substance: GADOPENTETATE DIMEGLUMINE
     Indication: SCAN BRAIN
     Dosage: 15 ML, ONCE
     Dates: start: 20140825, end: 20140825

REACTIONS (6)
  - Moaning [None]
  - Eye movement disorder [None]
  - Dyspnoea [None]
  - Lethargy [None]
  - Vomiting [None]
  - Drooling [None]

NARRATIVE: CASE EVENT DATE: 20140825
